FAERS Safety Report 6678193-5 (Version None)
Quarter: 2010Q2

REPORT INFORMATION
  Report Type: 
  Country: None (occurrence: None)
  Receive Date: 20100408
  Receipt Date: 20100408
  Transmission Date: 20101027
  Serious: Yes (Hospitalization)
  Sender: FDA-Public Use
  Company Number: None

PATIENT
  Age: 8 Year
  Sex: Female
  Weight: 27.8 kg

DRUGS (2)
  1. RAPAMUNE [Suspect]
     Indication: LYMPHATIC DISORDER
     Dosage: 0.7MG - 1.5MG BID PO
     Route: 048
     Dates: start: 20091125, end: 20100329
  2. SULFAMETHOXAZOLE-TIMETHOPRIM [Concomitant]

REACTIONS (12)
  - ABDOMINAL DISTENSION [None]
  - COAGULOPATHY [None]
  - DYSPNOEA [None]
  - FATIGUE [None]
  - HAEMOGLOBIN DECREASED [None]
  - HAEMOPTYSIS [None]
  - HEART RATE INCREASED [None]
  - ORTHOPNOEA [None]
  - PALLOR [None]
  - PLEURAL EFFUSION [None]
  - RESPIRATORY DISTRESS [None]
  - SKIN DISORDER [None]
